FAERS Safety Report 12826325 (Version 1)
Quarter: 2016Q4

REPORT INFORMATION
  Report Type: Spontaneous
  Country: RU (occurrence: RU)
  Receive Date: 20161007
  Receipt Date: 20161007
  Transmission Date: 20170207
  Serious: Yes (Hospitalization, Other)
  Sender: FDA-Public Use
  Company Number: RU-BAYER-2016-192846

PATIENT
  Age: 22 Year
  Sex: Female

DRUGS (1)
  1. YAZ PLUS [Suspect]
     Active Substance: DROSPIRENONE\ETHINYL ESTRADIOL
     Indication: OVARIAN CYST
     Dosage: UNK
     Route: 048

REACTIONS (4)
  - Abnormal withdrawal bleeding [None]
  - Appendicitis [None]
  - Off label use [None]
  - Drug dose omission [None]
